FAERS Safety Report 8283144-6 (Version None)
Quarter: 2012Q2

REPORT INFORMATION
  Report Type: 
  Country: None (occurrence: None)
  Receive Date: 20120413
  Receipt Date: 20120405
  Transmission Date: 20120825
  Serious: Yes (Death)
  Sender: FDA-Public Use
  Company Number: JP-GLAXOSMITHKLINE-B0774465A

PATIENT
  Age: 69 Year
  Sex: Male

DRUGS (5)
  1. HYCAMTIN [Suspect]
     Indication: SMALL CELL LUNG CANCER STAGE UNSPECIFIED
     Dosage: 1.5MG PER DAY
     Route: 042
     Dates: start: 20110830
  2. ETOPOSIDE [Concomitant]
     Route: 042
     Dates: start: 20110301, end: 20110801
  3. KYTRIL [Concomitant]
     Dosage: 3MG PER DAY
     Route: 042
     Dates: start: 20110830, end: 20110921
  4. ORGADRONE [Concomitant]
     Dosage: 3.8MG PER DAY
     Route: 042
     Dates: start: 20110830, end: 20110921
  5. CARBOPLATIN [Concomitant]
     Route: 042
     Dates: start: 20110301, end: 20110801

REACTIONS (1)
  - INTERSTITIAL LUNG DISEASE [None]
